FAERS Safety Report 7531790-7 (Version None)
Quarter: 2011Q2

REPORT INFORMATION
  Report Type: 
  Country: None (occurrence: None)
  Receive Date: 20110608
  Receipt Date: 20110527
  Transmission Date: 20111010
  Serious: Yes (Hospitalization)
  Sender: FDA-Public Use
  Company Number: JP-ROCHE-780421

PATIENT
  Sex: Female
  Weight: 52 kg

DRUGS (3)
  1. METHOTREXATE [Concomitant]
     Dosage: DOSAGE IS UNCERTAIN, DOSE FORM: PERORAL
     Route: 048
  2. ACTEMRA [Suspect]
     Indication: RHEUMATOID ARTHRITIS
     Dosage: DOSAGE IS UNCERTAIN
     Route: 041
     Dates: start: 20080701, end: 20110301
  3. PROGRAF [Suspect]
     Dosage: DOSE FORM:PERORAL AGENT, DOSAGE IS UNCERTAIN
     Route: 048
     Dates: start: 20100601

REACTIONS (3)
  - SYSTEMIC LUPUS ERYTHEMATOSUS [None]
  - PLEURISY [None]
  - WHITE BLOOD CELL COUNT DECREASED [None]
